FAERS Safety Report 6242134-5 (Version None)
Quarter: 2009Q2

REPORT INFORMATION
  Report Type: 
  Country: None (occurrence: None)
  Receive Date: 20090622
  Receipt Date: 20090622
  Transmission Date: 20091009
  Serious: No
  Sender: FDA-Public Use
  Company Number: None

PATIENT
  Sex: Female

DRUGS (2)
  1. LASIX [Suspect]
     Indication: FLUID RETENTION
     Dosage: 2 DAYS ONCE BID
  2. LASIX [Suspect]
     Indication: OEDEMA
     Dosage: 2 DAYS ONCE BID

REACTIONS (1)
  - DRUG INEFFECTIVE [None]
